FAERS Safety Report 24781160 (Version 1)
Quarter: 2024Q4

REPORT INFORMATION
  Report Type: Report from Study
  Country: EG (occurrence: EG)
  Receive Date: 20241227
  Receipt Date: 20241227
  Transmission Date: 20250115
  Serious: Yes (Disabling, Other)
  Sender: NOVARTIS
  Company Number: EG-002147023-NVSC2024EG242867

PATIENT
  Age: 67 Year
  Sex: Male
  Weight: 100 kg

DRUGS (16)
  1. ENTRESTO [Suspect]
     Active Substance: SACUBITRIL\VALSARTAN
     Indication: Cardiac failure
     Dosage: 50 MG, BID
     Route: 048
     Dates: end: 20241219
  2. ENTRESTO [Suspect]
     Active Substance: SACUBITRIL\VALSARTAN
     Dosage: 100 MG, QD
     Route: 048
  3. ENTRESTO [Suspect]
     Active Substance: SACUBITRIL\VALSARTAN
     Dosage: 100 MG, QD
     Route: 048
     Dates: start: 20231226
  4. ELIQUIS [Suspect]
     Active Substance: APIXABAN
     Indication: Antiplatelet therapy
     Dosage: 5 MG, BID (TABLET)
     Route: 048
  5. APIXABAN [Suspect]
     Active Substance: APIXABAN
     Indication: Antiplatelet therapy
     Dosage: UNK, BID (TABLET)
     Route: 048
  6. GABAPENTIN [Suspect]
     Active Substance: GABAPENTIN
     Indication: Inflammation
     Dosage: UNK, TID (TABLET)
     Route: 048
  7. FOLIC ACID [Suspect]
     Active Substance: FOLIC ACID
     Indication: Inflammation
     Dosage: UNK, TID (TABLET)
     Route: 048
  8. DIETARY SUPPLEMENT\HERBALS [Suspect]
     Active Substance: DIETARY SUPPLEMENT\HERBALS
     Indication: Inflammation
     Dosage: 1000 MG, QD (TABLET)
     Route: 048
  9. BENFOTIAMINE\CYANOCOBALAMIN\PYRIDOXINE HYDROCHLORIDE [Suspect]
     Active Substance: BENFOTIAMINE\CYANOCOBALAMIN\PYRIDOXINE HYDROCHLORIDE
     Indication: Nervous system disorder
     Dosage: UNK, QD (TABLET)
     Route: 048
  10. ASPIRIN [Suspect]
     Active Substance: ASPIRIN
     Indication: Antiplatelet therapy
     Dosage: UNK UNK, OTHER (4 TABLETS AT ONCE DAILY)
     Route: 048
  11. PLAVIX [Suspect]
     Active Substance: CLOPIDOGREL BISULFATE
     Indication: Antiplatelet therapy
     Dosage: UNK, QD (TABLET)
     Route: 048
  12. DIOSMIN\HESPERIDIN [Suspect]
     Active Substance: DIOSMIN\HESPERIDIN
     Indication: Inflammation
     Dosage: UNK, QD (TABLET)
     Route: 048
  13. CALCIUM CARBONATE\MAGNESIUM HYDROXIDE [Suspect]
     Active Substance: CALCIUM CARBONATE\MAGNESIUM HYDROXIDE
     Indication: Inflammation
     Dosage: UNK, BID (TABLET)
     Route: 048
  14. VASTAREL [Suspect]
     Active Substance: TRIMETAZIDINE DIHYDROCHLORIDE
     Indication: Cardiac disorder
     Dosage: UNK, BID (TABLET)
     Route: 048
  15. IVABRADINE [Suspect]
     Active Substance: IVABRADINE
     Indication: Cardiac disorder
     Dosage: UNK, BID (TABLET)
     Route: 048
  16. NICORANDIL [Suspect]
     Active Substance: NICORANDIL
     Indication: Cardiac disorder
     Dosage: UNK, BID (TABLET)
     Route: 048

REACTIONS (6)
  - Fatigue [Recovering/Resolving]
  - Feeling cold [Recovered/Resolved]
  - Blood glucose decreased [Recovered/Resolved]
  - Haemoglobin decreased [Recovered/Resolved]
  - Blood pressure abnormal [Recovered/Resolved]
  - Off label use [Recovered/Resolved]

NARRATIVE: CASE EVENT DATE: 20241119
